FAERS Safety Report 22102071 (Version 1)
Quarter: 2023Q1

REPORT INFORMATION
  Report Type: Spontaneous
  Country: US (occurrence: US)
  Receive Date: 20230316
  Receipt Date: 20230316
  Transmission Date: 20230418
  Serious: No
  Sender: FDA-Public Use
  Company Number: US-GSKCCFUS-Case-01653671_AE-93345

PATIENT
  Sex: Male

DRUGS (1)
  1. VENTOLIN HFA [Suspect]
     Active Substance: ALBUTEROL SULFATE
     Indication: Product used for unknown indication
     Dosage: UNK

REACTIONS (5)
  - COVID-19 [Recovered/Resolved]
  - Asthma [Not Recovered/Not Resolved]
  - Fatigue [Not Recovered/Not Resolved]
  - Ageusia [Not Recovered/Not Resolved]
  - Feeling abnormal [Not Recovered/Not Resolved]
